FAERS Safety Report 6992855-1 (Version None)
Quarter: 2010Q3

REPORT INFORMATION
  Report Type: 
  Country: None (occurrence: None)
  Receive Date: 20100917
  Receipt Date: 20100906
  Transmission Date: 20110219
  Serious: Yes (Hospitalization)
  Sender: FDA-Public Use
  Company Number: B0657910A

PATIENT
  Sex: Female
  Weight: 98 kg

DRUGS (1)
  1. ELTROMBOPAG [Suspect]
     Indication: AUTOIMMUNE THROMBOCYTOPENIA
     Route: 048
     Dates: start: 20090618

REACTIONS (18)
  - CENTRAL-ALVEOLAR HYPOVENTILATION [None]
  - CHEST PAIN [None]
  - COUGH [None]
  - DERMATITIS [None]
  - DYSPNOEA [None]
  - EPISTAXIS [None]
  - ERYTHEMA [None]
  - GRANULOMA [None]
  - HEPATOCELLULAR INJURY [None]
  - HYPOXIA [None]
  - INTERSTITIAL LUNG DISEASE [None]
  - KELOID SCAR [None]
  - LYMPHADENOPATHY MEDIASTINAL [None]
  - MOUTH HAEMORRHAGE [None]
  - ORGANISING PNEUMONIA [None]
  - PYREXIA [None]
  - RESPIRATORY DISORDER [None]
  - SARCOIDOSIS [None]
